FAERS Safety Report 21244970 (Version 1)
Quarter: 2022Q3

REPORT INFORMATION
  Report Type: Spontaneous
  Country: US (occurrence: None)
  Receive Date: 20220823
  Receipt Date: 20220823
  Transmission Date: 20221027
  Serious: Yes (Other)
  Sender: FDA-Public Use
  Company Number: None

PATIENT
  Age: 55 Year
  Sex: Female
  Weight: 66.6 kg

DRUGS (8)
  1. PAXLOVID [Suspect]
     Active Substance: NIRMATRELVIR\RITONAVIR
     Indication: COVID-19
  2. TALTZ [Concomitant]
     Active Substance: IXEKIZUMAB
  3. SULFASALAZINE [Concomitant]
     Active Substance: SULFASALAZINE
  4. PREVACID [Concomitant]
     Active Substance: LANSOPRAZOLE
  5. htcz [Concomitant]
  6. blood pressure med [Concomitant]
  7. VITAMIN D3 [Concomitant]
     Active Substance: CHOLECALCIFEROL
  8. CURCUMIN [Concomitant]
     Active Substance: CURCUMIN

REACTIONS (4)
  - SARS-CoV-2 test positive [None]
  - Dyspnoea [None]
  - Job dissatisfaction [None]
  - Rebound effect [None]

NARRATIVE: CASE EVENT DATE: 20220823
